FAERS Safety Report 17118097 (Version 1)
Quarter: 2019Q4

REPORT INFORMATION
  Report Type: Spontaneous
  Country: NL (occurrence: NL)
  Receive Date: 20191205
  Receipt Date: 20191205
  Transmission Date: 20200122
  Serious: Yes (Hospitalization, Other)
  Sender: FDA-Public Use
  Company Number: NL-GALDERMA-NL19063788

PATIENT
  Age: 54 Year
  Sex: Female

DRUGS (1)
  1. DOXYCYCLINE. [Suspect]
     Active Substance: DOXYCYCLINE
     Indication: PRODUCT USED FOR UNKNOWN INDICATION
     Route: 065

REACTIONS (13)
  - Malnutrition [Recovering/Resolving]
  - Depressed level of consciousness [Recovered/Resolved]
  - Abnormal behaviour [Unknown]
  - Ornithine transcarbamoylase deficiency [Unknown]
  - Incoherent [Unknown]
  - Weight decreased [Unknown]
  - Pyrexia [Unknown]
  - Hyperammonaemia [Unknown]
  - Personality disorder [Unknown]
  - Heart rate increased [Unknown]
  - Pancreatitis [Unknown]
  - Pneumonia [Unknown]
  - Agitation [Unknown]
